FAERS Safety Report 5701569-7 (Version None)
Quarter: 2008Q2

REPORT INFORMATION
  Report Type: 
  Country: None (occurrence: None)
  Receive Date: 20080408
  Receipt Date: 20080402
  Transmission Date: 20081010
  Serious: Yes (Life-Threatening)
  Sender: FDA-Public Use
  Company Number: CLOF-1000128

PATIENT
  Age: 64 Year
  Sex: Male
  Weight: 73.5 kg

DRUGS (2)
  1. CLOFARABINE (CLOFARABINE) SOLUTION FOR INFUSION [Suspect]
     Indication: ACUTE MYELOID LEUKAEMIA
     Dosage: 40 MG/M2, QDX5, INTRAVENOUS
     Route: 042
     Dates: start: 20080319, end: 20080323
  2. MELPHALAN (MELPHALAN) [Suspect]
     Indication: ACUTE MYELOID LEUKAEMIA
     Dosage: 100 MG/M2, ONCE
     Dates: start: 20080324, end: 20080324

REACTIONS (9)
  - ALANINE AMINOTRANSFERASE INCREASED [None]
  - ASPARTATE AMINOTRANSFERASE INCREASED [None]
  - DIALYSIS [None]
  - HEPATOTOXICITY [None]
  - HYPOTENSION [None]
  - MUCOSAL INFLAMMATION [None]
  - RENAL FAILURE [None]
  - TACHYCARDIA [None]
  - VENTRICULAR TACHYCARDIA [None]
